FAERS Safety Report 4455091-9 (Version None)
Quarter: 2004Q3

REPORT INFORMATION
  Report Type: 
  Country: None (occurrence: None)
  Receive Date: 20040917
  Receipt Date: 20040902
  Transmission Date: 20050211
  Serious: Yes (Death, Hospitalization)
  Sender: FDA-Public Use
  Company Number: WAESA 0408USA01627

PATIENT
  Age: 68 Year
  Sex: Female

DRUGS (14)
  1. COZAAR [Suspect]
     Indication: HYPERTENSION
     Dosage: 50MG/DAILY
     Route: 048
     Dates: start: 20040226, end: 20030929
  2. BASEN [Concomitant]
  3. FLUTICASONE PROPIONATE [Concomitant]
  4. HUMALOG [Concomitant]
  5. ISOSORBIDE MONONITRATE [Concomitant]
  6. JUVELA NICOTINATE [Concomitant]
  7. KINEDAK [Concomitant]
  8. CYANOCOBALAMIN [Concomitant]
  9. MEVALOTIN [Concomitant]
  10. NORVASC [Concomitant]
  11. PENFILL R [Concomitant]
  12. PEPCID [Concomitant]
  13. PLETAL [Concomitant]
  14. SULTANOL [Concomitant]

REACTIONS (3)
  - DISSEMINATED INTRAVASCULAR COAGULATION [None]
  - INFECTION [None]
  - VASCULAR PURPURA [None]
